FAERS Safety Report 19188273 (Version 22)
Quarter: 2022Q4

REPORT INFORMATION
  Report Type: Other
  Country: JP (occurrence: JP)
  Receive Date: 20210427
  Receipt Date: 20221122
  Transmission Date: 20230113
  Serious: Yes (Hospitalization, Other)
  Sender: FDA-Public Use
  Company Number: JP-CHUGAI-A2021016859ROCHE

PATIENT
  Age: 62 Year
  Sex: Male
  Weight: 71.3 kg

DRUGS (8)
  1. ATEZOLIZUMAB [Suspect]
     Active Substance: ATEZOLIZUMAB
     Indication: Lung adenocarcinoma
     Dosage: 1200 MILLIGRAM
     Route: 041
     Dates: start: 20210325
  2. ATEZOLIZUMAB [Suspect]
     Active Substance: ATEZOLIZUMAB
     Route: 041
     Dates: start: 20220627
  3. BEVACIZUMAB [Suspect]
     Active Substance: BEVACIZUMAB
     Indication: Lung adenocarcinoma
     Dosage: 1069 MILLIGRAM
     Route: 041
     Dates: start: 20210325, end: 20210527
  4. BEVACIZUMAB [Suspect]
     Active Substance: BEVACIZUMAB
     Dosage: 1065 MILLIGRAM
     Route: 041
     Dates: start: 20210617, end: 20220606
  5. CARBOPLATIN [Suspect]
     Active Substance: CARBOPLATIN
     Indication: Lung adenocarcinoma
     Dosage: 802 MILLIGRAM, QD
     Route: 041
     Dates: start: 20210325, end: 20210325
  6. CARBOPLATIN [Suspect]
     Active Substance: CARBOPLATIN
     Dosage: 775 MILLIGRAM
     Route: 041
     Dates: start: 20210415
  7. CARBOPLATIN [Suspect]
     Active Substance: CARBOPLATIN
     Route: 041
     Dates: start: 20210527
  8. PACLITAXEL [Suspect]
     Active Substance: PACLITAXEL
     Indication: Lung adenocarcinoma
     Dosage: MOST RECENT DOSE: 27/MAY/2021
     Route: 041
     Dates: start: 20210325

REACTIONS (11)
  - Malaise [Recovered/Resolved]
  - Nausea [Recovered/Resolved]
  - Cerebrovascular accident [Unknown]
  - Cerebral infarction [Recovered/Resolved with Sequelae]
  - Gastric ulcer [Recovered/Resolved]
  - White blood cell count decreased [Recovered/Resolved]
  - Febrile neutropenia [Recovered/Resolved]
  - Chronic gastritis [Recovered/Resolved]
  - Glycosuria [Recovered/Resolved]
  - Proteinuria [Not Recovered/Not Resolved]
  - Neuropathy peripheral [Recovering/Resolving]

NARRATIVE: CASE EVENT DATE: 20210330
